FAERS Safety Report 9170459 (Version 1)
Quarter: 2013Q1

REPORT INFORMATION
  Report Type: Spontaneous
  Country: US (occurrence: None)
  Receive Date: 20130312
  Receipt Date: 20130312
  Transmission Date: 20140127
  Serious: Yes (Hospitalization)
  Sender: FDA-Public Use
  Company Number: 1618060

PATIENT
  Age: 37 Year
  Sex: Female

DRUGS (2)
  1. TOPOTECAN HYDROCHLORIDE [Suspect]
     Indication: OVARIAN LOW MALIGNANT POTENTIAL TUMOUR
     Dosage: 3.45 MG/M2 MILLIGRAM(S)/SQ, METER (CYCLICAL)
  2. TOPOTECAN HYDROCHLORIDE [Suspect]
     Indication: NEOPLASM RECURRENCE
     Dosage: 3.45 MG/M2 MILLIGRAM(S)/SQ, METER (CYCLICAL)

REACTIONS (14)
  - Acute febrile neutrophilic dermatosis [None]
  - Staphylococcus test positive [None]
  - Eye irritation [None]
  - Rash papular [None]
  - Rash erythematous [None]
  - Rash vesicular [None]
  - Therapy cessation [None]
  - Pyrexia [None]
  - Dermatitis [None]
  - Conjunctivitis [None]
  - Dry eye [None]
  - Vision blurred [None]
  - Diplopia [None]
  - Skin mass [None]
